FAERS Safety Report 22706704 (Version 4)
Quarter: 2023Q4

REPORT INFORMATION
  Report Type: Spontaneous
  Country: US (occurrence: US)
  Receive Date: 20230714
  Receipt Date: 20231115
  Transmission Date: 20240110
  Serious: No
  Sender: FDA-Public Use
  Company Number: US-PFIZER INC-202300247509

PATIENT
  Age: 54 Year
  Sex: Female

DRUGS (1)
  1. PAXLOVID [Suspect]
     Active Substance: NIRMATRELVIR\RITONAVIR
     Indication: COVID-19 treatment
     Dosage: [NIRMATRELVIR 300 MG]/[RITONAVIR 100 MG]; 2X/DAY

REACTIONS (6)
  - Dysgeusia [Unknown]
  - Abdominal discomfort [Unknown]
  - Chest pain [Unknown]
  - Pulmonary pain [Unknown]
  - Poor quality product administered [Unknown]
  - Product physical issue [Unknown]
